FAERS Safety Report 9511268 (Version 4)
Quarter: 2015Q2

REPORT INFORMATION
  Report Type: Spontaneous
  Country: US (occurrence: US)
  Receive Date: 20130910
  Receipt Date: 20150525
  Transmission Date: 20150821
  Serious: Yes (Hospitalization, Other)
  Sender: FDA-Public Use
  Company Number: US-JNJFOC-20130902821

PATIENT
  Age: 59 Year
  Sex: Male
  Weight: 73.94 kg

DRUGS (1)
  1. XARELTO [Suspect]
     Active Substance: RIVAROXABAN
     Indication: DEEP VEIN THROMBOSIS
     Route: 048
     Dates: start: 20130712

REACTIONS (6)
  - Malaise [Unknown]
  - Diplopia [Unknown]
  - Fatigue [Unknown]
  - Metastasis [Unknown]
  - Decreased appetite [Unknown]
  - Pericardial haemorrhage [Recovering/Resolving]

NARRATIVE: CASE EVENT DATE: 20130804
